FAERS Safety Report 26109454 (Version 1)
Quarter: 2025Q4

REPORT INFORMATION
  Report Type: Report from Study
  Country: US (occurrence: US)
  Receive Date: 20251201
  Receipt Date: 20251201
  Transmission Date: 20260118
  Serious: Yes (Death, Hospitalization)
  Sender: MYLAN
  Company Number: US-MYLANLABS-2025M1102315

PATIENT
  Age: 16 Year
  Sex: Male

DRUGS (7)
  1. METHOTREXATE [Suspect]
     Active Substance: METHOTREXATE
     Indication: B-cell type acute leukaemia
     Dosage: 250 MILLIGRAM/SQ. METER, QD (ON DAY 1 ;CYCLICAL; PART OF MINI-HCVD REGIMEN), IV INFUSION
  2. DEXAMETHASONE SODIUM PHOSPHATE [Suspect]
     Active Substance: DEXAMETHASONE SODIUM PHOSPHATE
     Indication: B-cell type acute leukaemia
     Dosage: 10 MILLIGRAM/SQ. METER, BID (ON DAYS 1-4 AND 11-14; CYCLICAL; PART OF MINI-HCVD REGIMEN)
  3. CYCLOPHOSPHAMIDE [Suspect]
     Active Substance: CYCLOPHOSPHAMIDE
     Indication: B-cell type acute leukaemia
     Dosage: 150 MILLIGRAM/SQ. METER, BID (ON DAYS 1-3; CYCLICAL; PART OF MINI-HCVD REGIMEN)
  4. CYTARABINE [Suspect]
     Active Substance: CYTARABINE
     Indication: B-cell type acute leukaemia
     Dosage: UNK, BID (0.5 GRAMS/M2 ON DAYS 2 AND 3; CYCLICAL; PART OF MINI-HCVD REGIMEN)
  5. VINCRISTINE [Suspect]
     Active Substance: VINCRISTINE
     Indication: B-cell type acute leukaemia
     Dosage: 1.5 MILLIGRAM/SQ. METER (ON DAYS 1 AND 8; PART OF MINI-HCVD REGIMEN)
  6. INOTUZUMAB OZOGAMICIN [Suspect]
     Active Substance: INOTUZUMAB OZOGAMICIN
     Indication: B-cell type acute leukaemia
     Dosage: UNK
  7. PEGFILGRASTIM [Concomitant]
     Active Substance: PEGFILGRASTIM
     Indication: Prophylaxis
     Dosage: 0.1 MILLIGRAM/KILOGRAM

REACTIONS (3)
  - Drug ineffective [Fatal]
  - Disease progression [Fatal]
  - Venoocclusive liver disease [Recovered/Resolved]
